FAERS Safety Report 5902324-5 (Version None)
Quarter: 2008Q3

REPORT INFORMATION
  Report Type: 
  Country: None (occurrence: None)
  Receive Date: 20080929
  Receipt Date: 20080916
  Transmission Date: 20090109
  Serious: No
  Sender: FDA-Public Use
  Company Number: US-B.I. PHARMACEUTICALS,INC./RIDGEFIELD-2008-BP-13906BP

PATIENT
  Age: 60 Year
  Sex: Female
  Weight: 66 kg

DRUGS (3)
  1. VIRAMUNE [Suspect]
     Indication: HIV INFECTION
     Dosage: 400MG
     Dates: start: 19991101, end: 20080828
  2. TRUVADA [Concomitant]
     Dates: start: 20040904
  3. ZIAGEN [Concomitant]
     Dosage: 600MG
     Dates: start: 20080306

REACTIONS (1)
  - RASH [None]
